FAERS Safety Report 8818612 (Version 1)
Quarter: 2012Q4

REPORT INFORMATION
  Report Type: 
  Country: US (occurrence: US)
  Receive Date: 20121001
  Receipt Date: 20121001
  Transmission Date: 20130627
  Serious: Yes (Other)
  Sender: FDA-Public Use
  Company Number: US-PFIZER INC-2012240866

PATIENT
  Sex: Female

DRUGS (8)
  1. LYRICA [Suspect]
     Indication: FIBROMYALGIA
     Dosage: UNK
     Route: 048
     Dates: start: 2006
  2. LYRICA [Suspect]
     Dosage: 300 mg, 3x/day
     Route: 048
     Dates: end: 201203
  3. LYRICA [Suspect]
     Dosage: 200 mg, 3x/day
     Route: 048
     Dates: start: 201203, end: 201205
  4. DEPAKOTE [Concomitant]
     Indication: HEADACHE
     Dosage: UNK
  5. FENTANYL [Concomitant]
     Dosage: UNK
  6. PERCOCET [Concomitant]
     Dosage: 10/325 mg, 3x/day
  7. PHENERGAN [Concomitant]
     Indication: NAUSEA
     Dosage: UNK
  8. ZOFRAN [Concomitant]
     Indication: NAUSEA
     Dosage: UNK

REACTIONS (6)
  - Aphagia [Recovered/Resolved]
  - Vomiting [Recovered/Resolved]
  - Cluster headache [Recovered/Resolved]
  - Malaise [Recovered/Resolved]
  - Hyperhidrosis [Recovered/Resolved]
  - Incorrect dose administered [Unknown]
